FAERS Safety Report 17277415 (Version 1)
Quarter: 2020Q1

REPORT INFORMATION
  Report Type: Spontaneous
  Country: US (occurrence: US)
  Receive Date: 20191226
  Receipt Date: 20191226
  Transmission Date: 20200409
  Serious: Yes (Other)
  Sender: FDA-Public Use
  Company Number: None

PATIENT
  Age: 69 Year
  Sex: Female
  Weight: 79.38 kg

DRUGS (6)
  1. SUCRALFATE. [Concomitant]
     Active Substance: SUCRALFATE
  2. CALCIUM [Concomitant]
     Active Substance: CALCIUM
  3. BUTRANS [Concomitant]
     Active Substance: BUPRENORPHINE
  4. LIVALO [Concomitant]
     Active Substance: PITAVASTATIN CALCIUM
  5. GABAPENTIN. [Concomitant]
     Active Substance: GABAPENTIN
  6. BUPRENORPHINE TRANSDERMAL SYSTEM 10MCG/HOUR [Suspect]
     Active Substance: BUPRENORPHINE
     Indication: PAIN
     Dosage: ?          QUANTITY:10 UG MICROGRAM(S);OTHER FREQUENCY:EVERY 7 DAY 4 PATC;?
     Route: 003
     Dates: start: 201901, end: 20191129

REACTIONS (1)
  - Product adhesion issue [None]

NARRATIVE: CASE EVENT DATE: 20190101
